FAERS Safety Report 5212288-8 (Version None)
Quarter: 2006Q4

REPORT INFORMATION
  Report Type: 
  Country: None (occurrence: None)
  Receive Date: 20061130
  Receipt Date: 20051216
  Transmission Date: 20070319
  Serious: Yes (Disabling)
  Sender: FDA-Public Use
  Company Number: WAES 0512USA02549

PATIENT
  Age: 72 Year
  Sex: Female

DRUGS (2)
  1. FOSAMAX [Suspect]
     Indication: OSTEOPOROSIS
     Dosage: 10 MG/DAILY/PO
     Route: 048
     Dates: start: 20010101, end: 20010101
  2. FOSAMAX [Suspect]
     Indication: SPINAL COMPRESSION FRACTURE
     Dosage: 10 MG/DAILY/PO
     Route: 048
     Dates: start: 20010101, end: 20010101

REACTIONS (1)
  - OESOPHAGEAL STENOSIS [None]
